FAERS Safety Report 4300084-5 (Version None)
Quarter: 2004Q1

REPORT INFORMATION
  Report Type: 
  Country: None (occurrence: None)
  Receive Date: 20040218
  Receipt Date: 20040209
  Transmission Date: 20041129
  Serious: Yes (Death, Life-Threatening, Hospitalization)
  Sender: FDA-Public Use
  Company Number: DE-JNJFOC-20031204277

PATIENT
  Age: 87 Year
  Sex: Male

DRUGS (34)
  1. LEVOFLOXACIN [Suspect]
     Indication: PNEUMONIA
     Dosage: INTRAVENOUS
     Route: 042
     Dates: start: 20031201, end: 20031203
  2. LEVOFLOXACIN [Suspect]
     Indication: PNEUMONIA
     Dosage: ORAL
     Route: 048
     Dates: start: 20031204, end: 20031210
  3. ENOXAPARIN (HEPARIN-FRACTION, SODIUM SALT) [Suspect]
     Indication: DRUG USE FOR UNKNOWN INDICATION
  4. HYDROCHLOROTHIAZIDE [Concomitant]
  5. COUMADIN [Concomitant]
  6. DIGOXIN [Concomitant]
  7. ACTOS [Concomitant]
  8. GLUCOTROL XL [Concomitant]
  9. PAXIL [Concomitant]
  10. LASIX [Concomitant]
  11. FLOMAX [Concomitant]
  12. MULTIVITAMIN [Concomitant]
  13. VITAMIN E [Concomitant]
  14. FERROUS SULFATE TAB [Concomitant]
  15. SENNA LAXATIVE (SENNA) [Concomitant]
  16. LANTUS [Concomitant]
  17. INSULIN [Concomitant]
  18. ALBUTEROL [Concomitant]
  19. ATROVENT [Concomitant]
  20. CARDIZEM [Concomitant]
  21. TYLENOL [Concomitant]
  22. ASPIRIN (ACETYSALICYLIC ACID) [Concomitant]
  23. LANOXIN [Concomitant]
  24. HYDROCHLOROTHIAZIDE [Concomitant]
  25. TRIAMTERENE [Concomitant]
  26. PREVACID [Concomitant]
  27. MUCOMYST [Concomitant]
  28. SINEMET [Concomitant]
  29. AMMONIUM LACTATE [Concomitant]
  30. NYSTATIN [Concomitant]
  31. DARVOCET (PROPACET) [Concomitant]
  32. MAGNESIUM CITRATE [Concomitant]
  33. DULCOLAX [Concomitant]
  34. MORPHINE SULFATE [Concomitant]

REACTIONS (10)
  - ACUTE RESPIRATORY FAILURE [None]
  - ATRIAL FIBRILLATION [None]
  - CHRONIC OBSTRUCTIVE AIRWAYS DISEASE EXACERBATED [None]
  - DIVERTICULUM [None]
  - ELECTROCARDIOGRAM ABNORMAL [None]
  - GASTRITIS [None]
  - GASTROINTESTINAL HAEMORRHAGE [None]
  - MYOCARDIAL INFARCTION [None]
  - OESOPHAGITIS [None]
  - RECTAL HAEMORRHAGE [None]
